FAERS Safety Report 18122656 (Version 1)
Quarter: 2020Q3

REPORT INFORMATION
  Report Type: Spontaneous
  Country: ES (occurrence: ES)
  Receive Date: 20200807
  Receipt Date: 20200807
  Transmission Date: 20201103
  Serious: Yes (Hospitalization, Other)
  Sender: FDA-Public Use
  Company Number: ES-MICRO LABS LIMITED-ML2020-02303

PATIENT
  Age: 2 Year
  Sex: Male

DRUGS (21)
  1. LEVETIRACETAM. [Suspect]
     Active Substance: LEVETIRACETAM
     Dosage: DAY 0 FIRST ADMISSION, DAY +20 FIRST ADMISSION
  2. PHENOBARBITAL. [Concomitant]
     Active Substance: PHENOBARBITAL
     Indication: SEIZURE PROPHYLAXIS
  3. LEVETIRACETAM. [Suspect]
     Active Substance: LEVETIRACETAM
     Indication: EPILEPSY
     Dosage: DAY 0 FIRST ADMISSION, DAY +20 FIRST ADMISSION
  4. PHENYTOIN. [Suspect]
     Active Substance: PHENYTOIN
     Indication: EPILEPSY
     Dosage: (DAY +8 AND DAY +9 FIRST ADMISSION)
  5. CEFOTAXIME [Concomitant]
     Active Substance: CEFOTAXIME SODIUM
     Indication: ENCEPHALITIS
  6. CARBAMAZEPINE. [Suspect]
     Active Substance: CARBAMAZEPINE
     Dosage: DAY +9 FIRST ADMISSION, DAY 0 SECOND ADMISSION
  7. CARBAMAZEPINE. [Suspect]
     Active Substance: CARBAMAZEPINE
     Dosage: DAY +9 FIRST ADMISSION, DAY 0 SECOND ADMISSION
  8. PROPOFOL. [Concomitant]
     Active Substance: PROPOFOL
  9. CLARITHROMYCIN. [Concomitant]
     Active Substance: CLARITHROMYCIN
     Indication: ENCEPHALITIS
  10. MEROPENEM. [Concomitant]
     Active Substance: MEROPENEM
  11. VANCOMYCIN [Concomitant]
     Active Substance: VANCOMYCIN
     Indication: ENCEPHALITIS
  12. VALPROIC ACID. [Concomitant]
     Active Substance: VALPROIC ACID
     Indication: PARTIAL SEIZURES
     Dosage: 5 MG/KG/HOURS FROM DAY 5 TO DAY 6 OF THE HOSPITALISATION
  13. CARBAMAZEPINE. [Suspect]
     Active Substance: CARBAMAZEPINE
     Dosage: DAY +9 FIRST ADMISSION, DAY 0 SECOND ADMISSION
  14. LEVETIRACETAM. [Suspect]
     Active Substance: LEVETIRACETAM
     Dosage: DAY 0 FIRST ADMISSION, DAY +20 FIRST ADMISSION
  15. ACYCLOVIR. [Concomitant]
     Active Substance: ACYCLOVIR
     Indication: ENCEPHALITIS
  16. LEVETIRACETAM. [Suspect]
     Active Substance: LEVETIRACETAM
     Dosage: DAY 0 FIRST ADMISSION, DAY +20 FIRST ADMISSION
  17. CARBAMAZEPINE. [Suspect]
     Active Substance: CARBAMAZEPINE
     Dosage: DAY +9 FIRST ADMISSION, DAY 0 SECOND ADMISSION
  18. MIDAZOLAM. [Concomitant]
     Active Substance: MIDAZOLAM
  19. CARBAMAZEPINE. [Suspect]
     Active Substance: CARBAMAZEPINE
     Indication: EPILEPSY
     Dosage: DAY +9 FIRST ADMISSION, DAY 0 SECOND ADMISSION
  20. PIPERACILLIN AND TAZOBACTAM [Concomitant]
     Active Substance: PIPERACILLIN SODIUM\TAZOBACTAM SODIUM
     Indication: ENCEPHALITIS
  21. LACOSAMIDE. [Concomitant]
     Active Substance: LACOSAMIDE
     Indication: PARTIAL SEIZURES
     Dosage: FROM DAY 7 TO DAY 12 OF THE HOSPITALISATION AT DIFFERENT DOSES INCLUDING 1.7 MG/KG/DAY, 3 MG/KG/DAY,

REACTIONS (1)
  - Drug ineffective [Unknown]
